FAERS Safety Report 22045162 (Version 1)
Quarter: 2023Q1

REPORT INFORMATION
  Report Type: Spontaneous
  Country: US (occurrence: US)
  Receive Date: 20230228
  Receipt Date: 20230228
  Transmission Date: 20230418
  Serious: No
  Sender: FDA-Public Use
  Company Number: US-PFIZER INC-PV202300036468

PATIENT
  Age: 36 Year
  Sex: Female

DRUGS (2)
  1. CIBINQO [Suspect]
     Active Substance: ABROCITINIB
     Dosage: 100 MG
  2. ESTROGENS [Concomitant]
     Active Substance: ESTROGENS
     Dosage: UNK UNK, DAILY

REACTIONS (2)
  - Dyspnoea [Unknown]
  - Palpitations [Unknown]
